FAERS Safety Report 18362651 (Version 4)
Quarter: 2020Q4

REPORT INFORMATION
  Report Type: Spontaneous
  Country: IT (occurrence: IT)
  Receive Date: 20201008
  Receipt Date: 20201105
  Transmission Date: 20210114
  Serious: Yes (Death, Life-Threatening, Other)
  Sender: FDA-Public Use
  Company Number: IT-GILEAD-2020-0496665

PATIENT
  Age: 52 Year
  Sex: Female

DRUGS (17)
  1. YESCARTA [Suspect]
     Active Substance: AXICABTAGENE CILOLEUCEL
     Indication: DIFFUSE LARGE B-CELL LYMPHOMA
     Dosage: UNK
     Route: 042
     Dates: start: 20200917, end: 20200917
  2. ALLOPURINOLO [Concomitant]
     Active Substance: ALLOPURINOL
  3. LINEZOLID. [Concomitant]
     Active Substance: LINEZOLID
  4. LEVETIRACETAM. [Concomitant]
     Active Substance: LEVETIRACETAM
  5. OXYGEN. [Concomitant]
     Active Substance: OXYGEN
  6. BACTRIM [Concomitant]
     Active Substance: SULFAMETHOXAZOLE\TRIMETHOPRIM
  7. LASIX [Concomitant]
     Active Substance: FUROSEMIDE
  8. LANSOPRAZOLO [Concomitant]
     Active Substance: LANSOPRAZOLE
  9. CASPOFUNGIN [Concomitant]
     Active Substance: CASPOFUNGIN
  10. ALBUMIN [Concomitant]
     Active Substance: ALBUMIN HUMAN
  11. ACICLOVIR [Concomitant]
     Active Substance: ACYCLOVIR
  12. POSACONAZOL [Concomitant]
     Active Substance: POSACONAZOLE
  13. MEROPENEM. [Concomitant]
     Active Substance: MEROPENEM
  14. VANCOMYCIN [Concomitant]
     Active Substance: VANCOMYCIN
  15. LEVOFLOXACIN. [Concomitant]
     Active Substance: LEVOFLOXACIN
  16. PARACETAMOL [Concomitant]
     Active Substance: ACETAMINOPHEN
     Indication: PYREXIA
  17. PANTOPRAZOLO [Concomitant]
     Active Substance: PANTOPRAZOLE SODIUM

REACTIONS (20)
  - Diffuse large B-cell lymphoma [Fatal]
  - Altered state of consciousness [Recovering/Resolving]
  - Cytopenia [Unknown]
  - Pyrexia [Recovered/Resolved]
  - Oxygen therapy [Unknown]
  - Blood triglycerides abnormal [Recovering/Resolving]
  - Septic shock [Fatal]
  - Cytokine release syndrome [Recovered/Resolved]
  - Escherichia infection [Not Recovered/Not Resolved]
  - Dysgraphia [Recovering/Resolving]
  - Partial seizures [Recovering/Resolving]
  - Serum ferritin increased [Recovering/Resolving]
  - Septic shock [Not Recovered/Not Resolved]
  - Pyrexia [Recovered/Resolved]
  - Bone marrow failure [Not Recovered/Not Resolved]
  - Neurotoxicity [Recovering/Resolving]
  - Febrile neutropenia [Unknown]
  - Posterior reversible encephalopathy syndrome [Recovering/Resolving]
  - Hypogammaglobulinaemia [Unknown]
  - Cytokine release syndrome [Recovered/Resolved]

NARRATIVE: CASE EVENT DATE: 2020
